FAERS Safety Report 6533588-5 (Version None)
Quarter: 2010Q1

REPORT INFORMATION
  Report Type: 
  Country: None (occurrence: None)
  Receive Date: 20100111
  Receipt Date: 20100107
  Transmission Date: 20100710
  Serious: Yes (Death, Other)
  Sender: FDA-Public Use
  Company Number: PHHY2010JP00841

PATIENT
  Age: 69 Year
  Sex: Female

DRUGS (3)
  1. AREDIA [Suspect]
     Indication: METASTASES TO BONE
     Dosage: 15 MG, QMO
     Route: 042
     Dates: start: 20041001
  2. ZOMETA [Suspect]
     Indication: METASTASES TO BONE
     Dosage: 4 MG, QMO
     Route: 042
     Dates: start: 20060101
  3. ALENDRONATE SODIUM [Suspect]
     Indication: METASTASES TO BONE
     Dosage: 35 MG, QW
     Route: 048
     Dates: start: 20041001

REACTIONS (4)
  - BREAST CANCER METASTATIC [None]
  - IMPAIRED HEALING [None]
  - OSTEONECROSIS [None]
  - TOOTH EXTRACTION [None]
